FAERS Safety Report 17959091 (Version 1)
Quarter: 2020Q2

REPORT INFORMATION
  Report Type: Spontaneous
  Country: US (occurrence: US)
  Receive Date: 20200629
  Receipt Date: 20200629
  Transmission Date: 20200714
  Serious: No
  Sender: FDA-Public Use
  Company Number: US-EMERGENT BIOSOLUTIONS,-20000344SP

PATIENT
  Age: 39 Year
  Sex: Male

DRUGS (2)
  1. ABTHRAX [Suspect]
     Active Substance: RAXIBACUMAB
     Dosage: UNK
     Route: 042
     Dates: start: 20200509, end: 20200509
  2. ABTHRAX [Suspect]
     Active Substance: RAXIBACUMAB
     Indication: BACILLUS INFECTION
     Dosage: UNK
     Route: 042
     Dates: start: 20200503, end: 20200503

REACTIONS (1)
  - Off label use [Unknown]

NARRATIVE: CASE EVENT DATE: 20200503
